FAERS Safety Report 5510105-X (Version None)
Quarter: 2007Q4

REPORT INFORMATION
  Report Type: 
  Country: None (occurrence: None)
  Receive Date: 20071108
  Receipt Date: 20071030
  Transmission Date: 20080405
  Serious: Yes (Hospitalization)
  Sender: FDA-Public Use
  Company Number: AU-JNJFOC-20070901814

PATIENT
  Sex: Male

DRUGS (4)
  1. RISPERDAL CONSTA [Suspect]
     Indication: SCHIZOPHRENIA
     Route: 030
  2. RISPERIDONE [Suspect]
     Indication: DRUG USE FOR UNKNOWN INDICATION
  3. SERTRALINE [Concomitant]
  4. SERTRALINE [Concomitant]

REACTIONS (18)
  - ABASIA [None]
  - BLISTER [None]
  - CONFUSIONAL STATE [None]
  - DIARRHOEA [None]
  - DRUG INEFFECTIVE [None]
  - DRY MOUTH [None]
  - FEELING ABNORMAL [None]
  - GYNAECOMASTIA [None]
  - INJECTION SITE PAIN [None]
  - LACRIMATION INCREASED [None]
  - ORGASM ABNORMAL [None]
  - PARANOIA [None]
  - SINUSITIS [None]
  - STOMACH DISCOMFORT [None]
  - TESTICULAR PAIN [None]
  - TREATMENT NONCOMPLIANCE [None]
  - VISION BLURRED [None]
  - WEIGHT DECREASED [None]
